FAERS Safety Report 20543735 (Version 1)
Quarter: 2022Q1

REPORT INFORMATION
  Report Type: Spontaneous
  Country: US (occurrence: US)
  Receive Date: 20220303
  Receipt Date: 20220303
  Transmission Date: 20220423
  Serious: No
  Sender: FDA-Public Use
  Company Number: US-AMGEN-USASP2022034975

PATIENT
  Age: 2 Week

DRUGS (1)
  1. OTEZLA [Suspect]
     Active Substance: APREMILAST
     Indication: Maternal exposure during breast feeding
     Dosage: UNK
     Route: 063

REACTIONS (1)
  - Exposure via breast milk [Unknown]
